FAERS Safety Report 8364460-6 (Version None)
Quarter: 2012Q2

REPORT INFORMATION
  Report Type: 
  Country: None (occurrence: None)
  Receive Date: 20120516
  Receipt Date: 20110912
  Transmission Date: 20120825
  Serious: No
  Sender: FDA-Public Use
  Company Number: US-ALEXION-A201101382

PATIENT
  Sex: Female

DRUGS (1)
  1. SOLIRIS [Suspect]
     Indication: PAROXYSMAL NOCTURNAL HAEMOGLOBINURIA
     Dosage: 1200 MG, Q12 DAYS
     Route: 042

REACTIONS (5)
  - HAEMOLYSIS [None]
  - JAUNDICE [None]
  - DYSPHAGIA [None]
  - ABDOMINAL PAIN UPPER [None]
  - CHROMATURIA [None]
